APPROVED DRUG PRODUCT: DOBUTAMINE HYDROCHLORIDE
Active Ingredient: DOBUTAMINE HYDROCHLORIDE
Strength: EQ 12.5MG BASE/ML
Dosage Form/Route: INJECTABLE;INJECTION
Application: A074292 | Product #001
Applicant: HOSPIRA WORLDWIDE, INC
Approved: Feb 16, 1995 | RLD: No | RS: No | Type: DISCN